FAERS Safety Report 6255212-1 (Version None)
Quarter: 2009Q3

REPORT INFORMATION
  Report Type: 
  Country: None (occurrence: None)
  Receive Date: 20090702
  Receipt Date: 20090519
  Transmission Date: 20100115
  Serious: No
  Sender: FDA-Public Use
  Company Number: US-BAYER-200922994NA

PATIENT
  Age: 56 Year
  Sex: Female
  Weight: 87 kg

DRUGS (2)
  1. ULTRAVIST 300 [Suspect]
     Indication: COMPUTERISED TOMOGRAM ABDOMEN
     Dosage: TOTAL DAILY DOSE: 100 ML  UNIT DOSE: 500 ML
     Route: 042
     Dates: start: 20090515, end: 20090515
  2. REDI-CAT [Concomitant]
     Dosage: ORAL CONTRAST GIVEN 2 HRS BEFORE EXAM AND THIRD BOTTLE AT THE TIME OF CAT SCAN
     Route: 048
     Dates: start: 20090515, end: 20090515

REACTIONS (2)
  - PRURITUS [None]
  - URTICARIA [None]
